FAERS Safety Report 8456938-1 (Version None)
Quarter: 2012Q2

REPORT INFORMATION
  Report Type: 
  Country: None (occurrence: None)
  Receive Date: 20120323
  Receipt Date: 20110916
  Transmission Date: 20120825
  Serious: Yes (Other)
  Sender: FDA-Public Use
  Company Number: 163-21880-11092113

PATIENT
  Age: 70 Year
  Sex: Male
  Weight: 88.4514 kg

DRUGS (8)
  1. LEXAPRO [Concomitant]
  2. VELCADE [Concomitant]
  3. COUMADIN [Concomitant]
  4. PRILOSEC [Concomitant]
  5. PERCOCET [Concomitant]
  6. DEXAMETHASONE (DEXAMETHASONE) [Concomitant]
  7. REVLIMID [Suspect]
     Indication: MULTIPLE MYELOMA
     Dosage: 10 MG, 1 IN 1 D, PO
     Route: 048
     Dates: start: 20110820
  8. SENOKOT [Concomitant]

REACTIONS (2)
  - CONTUSION [None]
  - PLATELET COUNT DECREASED [None]
